FAERS Safety Report 9149209 (Version 1)
Quarter: 2013Q1

REPORT INFORMATION
  Report Type: Spontaneous
  Country: IT (occurrence: None)
  Receive Date: 20130131
  Receipt Date: 20130131
  Transmission Date: 20140127
  Serious: Yes (Other)
  Sender: FDA-Public Use
  Company Number: DSA_62081_2013

PATIENT
  Age: 66 Year
  Sex: Male

DRUGS (3)
  1. ENAPREN [Suspect]
     Dosage: 150 MG; ONCE; NOT AS PRESCIBED ORAL
     Route: 048
     Dates: start: 20121001, end: 20121001
  2. CARVEDILOL (CARVEDILOL) [Suspect]
     Dosage: 212.3 MG (34 TABLETS); ONCE; NOT AS PRESCIBED ORAL)
     Route: 048
     Dates: start: 20121001, end: 20121001
  3. COUMADIN [Suspect]
     Dosage: 50 MG; ONCE (34 TABLETS); ONCE; NOT AS PRESCIBED ORAL)
     Dates: start: 20121001, end: 20121001

REACTIONS (4)
  - Intentional self-injury [None]
  - Drug abuse [None]
  - Overdose [None]
  - Somnolence [None]
